FAERS Safety Report 4679254-2 (Version None)
Quarter: 2005Q2

REPORT INFORMATION
  Report Type: 
  Country: None (occurrence: None)
  Receive Date: 20050531
  Receipt Date: 20050531
  Transmission Date: 20051028
  Serious: Yes (Other)
  Sender: FDA-Public Use
  Company Number: None

PATIENT
  Sex: Female
  Weight: 56.8 kg

DRUGS (8)
  1. HYDROXYUREA [Suspect]
     Indication: ANAPLASTIC ASTROCYTOMA
     Dosage: 500 MG PO BID
     Route: 048
     Dates: start: 20050406
  2. GLEEVEC [Suspect]
     Dosage: 600 MG PO BID
     Route: 048
     Dates: start: 20050406
  3. DILANTIN [Concomitant]
  4. MULTI-VITAMIN [Concomitant]
  5. TEGRETOL [Concomitant]
  6. RESTORIL [Concomitant]
  7. VALIUM [Concomitant]
  8. CALCIUM GLUCONATE [Concomitant]

REACTIONS (3)
  - DRUG TOXICITY [None]
  - NEUTROPENIA [None]
  - NEUTROPHIL COUNT DECREASED [None]
